FAERS Safety Report 22590516 (Version 3)
Quarter: 2024Q1

REPORT INFORMATION
  Report Type: Report from Study
  Country: CA (occurrence: CA)
  Receive Date: 20230612
  Receipt Date: 20240206
  Transmission Date: 20240410
  Serious: Yes (Hospitalization)
  Sender: FDA-Public Use
  Company Number: CA-MYLANLABS-2023M1046571

PATIENT

DRUGS (2)
  1. OGIVRI [Suspect]
     Active Substance: TRASTUZUMAB-DKST
     Indication: Oesophageal cancer metastatic
     Dosage: UNK
     Route: 042
     Dates: start: 20230331, end: 20230414
  2. OGIVRI [Suspect]
     Active Substance: TRASTUZUMAB-DKST
     Dosage: UNK UNK, BIWEEKLY
     Route: 042
     Dates: start: 20230331

REACTIONS (4)
  - Hypophagia [Unknown]
  - Malaise [Unknown]
  - Infection [Unknown]
  - Treatment delayed [Unknown]
